FAERS Safety Report 6129339-9 (Version None)
Quarter: 2009Q1

REPORT INFORMATION
  Report Type: 
  Country: None (occurrence: None)
  Receive Date: 20090324
  Receipt Date: 20090318
  Transmission Date: 20090719
  Serious: Yes (Other)
  Sender: FDA-Public Use
  Company Number: KR-BRISTOL-MYERS SQUIBB COMPANY-14557557

PATIENT
  Sex: Female

DRUGS (3)
  1. CISPLATIN [Suspect]
     Indication: CERVIX CARCINOMA
  2. BLEOMYCIN [Suspect]
     Indication: CERVIX CARCINOMA
  3. VINCRISTINE [Suspect]
     Indication: CERVIX CARCINOMA

REACTIONS (1)
  - PULMONARY TOXICITY [None]
